FAERS Safety Report 6386615-2 (Version None)
Quarter: 2009Q4

REPORT INFORMATION
  Report Type: 
  Country: None (occurrence: None)
  Receive Date: 20091002
  Receipt Date: 20090923
  Transmission Date: 20100525
  Serious: Yes (Other)
  Sender: FDA-Public Use
  Company Number: US-JNJFOC-20090907938

PATIENT
  Age: 15 Month
  Sex: Male

DRUGS (2)
  1. TYLENOL (CAPLET) [Suspect]
     Route: 048
     Dates: start: 20090916, end: 20090919
  2. TYLENOL (CAPLET) [Suspect]
     Indication: PYREXIA
     Dosage: AS RECOMMENDED BY HER PHYSICIAN
     Route: 048
     Dates: start: 20090916, end: 20090919

REACTIONS (2)
  - RASH [None]
  - TRANSMISSION OF AN INFECTIOUS AGENT VIA A MEDICINAL PRODUCT [None]
